FAERS Safety Report 21173417 (Version 1)
Quarter: 2022Q3

REPORT INFORMATION
  Report Type: Spontaneous
  Country: US (occurrence: None)
  Receive Date: 20220804
  Receipt Date: 20220804
  Transmission Date: 20221027
  Serious: No
  Sender: FDA-Public Use
  Company Number: None

PATIENT
  Sex: Female

DRUGS (8)
  1. AMBRISENTAN [Suspect]
     Active Substance: AMBRISENTAN
     Indication: Pulmonary arterial hypertension
     Dosage: FREQUENCY : DAILY;?
     Route: 048
  2. TREPROSTINIL [Concomitant]
     Active Substance: TREPROSTINIL
  3. DIGOXIN [Concomitant]
     Active Substance: DIGOXIN
  4. SPIRONOLACTONE [Concomitant]
     Active Substance: SPIRONOLACTONE
  5. FUROSEMIDE [Concomitant]
     Active Substance: FUROSEMIDE
  6. VITAMIN D [Concomitant]
     Active Substance: VITAMIN D NOS
  7. AMOXICILLIN [Concomitant]
     Active Substance: AMOXICILLIN
  8. SILDENAFIL [Concomitant]
     Active Substance: SILDENAFIL

REACTIONS (2)
  - Drug intolerance [None]
  - Gastric disorder [None]
